FAERS Safety Report 14691006 (Version 1)
Quarter: 2018Q1

REPORT INFORMATION
  Report Type: Spontaneous
  Country: US (occurrence: US)
  Receive Date: 20180328
  Receipt Date: 20180328
  Transmission Date: 20180509
  Serious: No
  Sender: FDA-Public Use
  Company Number: US-MYLANLABS-2018M1015094

PATIENT
  Age: 89 Year
  Sex: Female
  Weight: 38 kg

DRUGS (6)
  1. DILTIAZEM HYDROCHLORIDE EXTENDED-RELEASE CAPSULES [Suspect]
     Active Substance: DILTIAZEM HYDROCHLORIDE
     Indication: CARDIAC FIBRILLATION
     Dosage: 120 MG, QD
     Route: 048
     Dates: end: 201803
  2. DILTIAZEM MYLAN [Suspect]
     Active Substance: DILTIAZEM
     Indication: CARDIAC FIBRILLATION
     Dosage: 30 MG, BID
     Route: 048
  3. DILTIAZEM MYLAN [Suspect]
     Active Substance: DILTIAZEM
     Dosage: 30 MG, BID
     Route: 048
     Dates: start: 201803
  4. DILTIAZEM MYLAN [Suspect]
     Active Substance: DILTIAZEM
     Dosage: 30 MG, BID
     Route: 048
     Dates: start: 2018, end: 201803
  5. DILTIAZEM HYDROCHLORIDE EXTENDED-RELEASE CAPSULES [Suspect]
     Active Substance: DILTIAZEM HYDROCHLORIDE
     Dosage: 120 MG, QD
     Route: 048
     Dates: start: 201803
  6. DEXILANT [Concomitant]
     Active Substance: DEXLANSOPRAZOLE
     Indication: DYSPEPSIA
     Dosage: UNK

REACTIONS (9)
  - Epigastric discomfort [Not Recovered/Not Resolved]
  - Blood pressure decreased [Recovered/Resolved]
  - Muscle spasms [Unknown]
  - Abdominal distension [Not Recovered/Not Resolved]
  - Abdominal pain upper [Not Recovered/Not Resolved]
  - Wrong technique in product usage process [Unknown]
  - Off label use [Not Recovered/Not Resolved]
  - Weight decreased [Not Recovered/Not Resolved]
  - Dizziness [Recovered/Resolved]

NARRATIVE: CASE EVENT DATE: 201803
